FAERS Safety Report 6990231 (Version 2)
Quarter: 2015Q3

REPORT INFORMATION
  Report Type: Spontaneous
  Country: US (occurrence: US)
  Receive Date: 20090508
  Receipt Date: 20150707
  Transmission Date: 20151125
  Serious: Yes (Death)
  Sender: FDA-Public Use
  Company Number: US-WATSON-2009-03055

PATIENT
  Age: 61 Year
  Sex: Female

DRUGS (2)
  1. LEVOFLOXACIN (WATSON LABORATORIES) [Suspect]
     Active Substance: LEVOFLOXACIN
     Indication: PRODUCT USED FOR UNKNOWN INDICATION
     Dosage: UNK
     Route: 065
  2. CLEOCIN HYDROCHLORIDE [Suspect]
     Active Substance: CLINDAMYCIN HYDROCHLORIDE
     Indication: PRODUCT USED FOR UNKNOWN INDICATION
     Dosage: UNK
     Route: 065
     Dates: start: 2008

REACTIONS (2)
  - Liver injury [Fatal]
  - Hepatic failure [Fatal]

NARRATIVE: CASE EVENT DATE: 2008
